FAERS Safety Report 25845374 (Version 2)
Quarter: 2025Q4

REPORT INFORMATION
  Report Type: Spontaneous
  Country: US (occurrence: US)
  Receive Date: 20250925
  Receipt Date: 20251224
  Transmission Date: 20260117
  Serious: Yes (Hospitalization)
  Sender: BRISTOL-MYERS SQUIBB COMPANY
  Company Number: US-BRISTOL-MYERS SQUIBB COMPANY-2025-131287

PATIENT
  Age: 74 Year

DRUGS (1)
  1. OPDIVO [Suspect]
     Active Substance: NIVOLUMAB
     Indication: Product used for unknown indication
     Dosage: DOSE AND STRENGTH: 480 (UNITS NOT PROVIDED); FREQUENCY: Q 4 WEEKS
     Route: 042
     Dates: end: 20250901

REACTIONS (1)
  - Hospitalisation [Unknown]
